FAERS Safety Report 19355437 (Version 1)
Quarter: 2021Q2

REPORT INFORMATION
  Report Type: Spontaneous
  Country: CH (occurrence: CH)
  Receive Date: 20210531
  Receipt Date: 20210531
  Transmission Date: 20210717
  Serious: Yes (Hospitalization)
  Sender: FDA-Public Use
  Company Number: CH-009507513-2105CHE007172

PATIENT
  Sex: Female

DRUGS (1)
  1. KEYTRUDA [Suspect]
     Active Substance: PEMBROLIZUMAB
     Indication: ENDOMETRIAL ADENOCARCINOMA
     Dosage: UNK
     Dates: start: 201806

REACTIONS (2)
  - Vaginal haemorrhage [Unknown]
  - Radiation associated haemorrhage [Unknown]

NARRATIVE: CASE EVENT DATE: 201807
